FAERS Safety Report 16699735 (Version 1)
Quarter: 2019Q3

REPORT INFORMATION
  Report Type: Spontaneous
  Country: BY (occurrence: BY)
  Receive Date: 20190813
  Receipt Date: 20190813
  Transmission Date: 20191004
  Serious: Yes (Other)
  Sender: FDA-Public Use
  Company Number: BY-JNJFOC-20190811196

PATIENT
  Age: 83 Year
  Sex: Female

DRUGS (6)
  1. RIVAROXABAN [Suspect]
     Active Substance: RIVAROXABAN
     Indication: PRODUCT USED FOR UNKNOWN INDICATION
     Dosage: 15 MG
     Route: 048
     Dates: start: 20190731, end: 20190805
  2. WATER FOR INJECTION [Concomitant]
     Active Substance: WATER
     Route: 065
  3. AMIODARONE [Concomitant]
     Active Substance: AMIODARONE
     Route: 042
  4. PERINDOPRIL [Concomitant]
     Active Substance: PERINDOPRIL
     Route: 065
  5. TACHYBEN [Concomitant]
     Route: 042
  6. PANTOPRAZOLE [Concomitant]
     Active Substance: PANTOPRAZOLE
     Route: 065

REACTIONS (3)
  - Hemiparesis [Unknown]
  - Cerebral haemorrhage [Unknown]
  - Eye disorder [Unknown]

NARRATIVE: CASE EVENT DATE: 20190805
